FAERS Safety Report 7724756-5 (Version None)
Quarter: 2011Q3

REPORT INFORMATION
  Report Type: 
  Country: None (occurrence: None)
  Receive Date: 20110901
  Receipt Date: 20110829
  Transmission Date: 20111222
  Serious: Yes (Other)
  Sender: FDA-Public Use
  Company Number: US-ABBOTT-11P-163-0850232-00

PATIENT
  Sex: Male
  Weight: 107.6 kg

DRUGS (4)
  1. LISINOPRIL [Concomitant]
     Indication: HYPERTENSION
  2. GLUCOSAMINE [Concomitant]
     Indication: SUPPLEMENTATION THERAPY
  3. FISH OIL [Concomitant]
     Indication: SUPPLEMENTATION THERAPY
  4. SIMCOR [Suspect]
     Indication: BLOOD CHOLESTEROL INCREASED
     Dates: start: 20100801

REACTIONS (4)
  - FLUSHING [None]
  - PRURITUS [None]
  - OSTEOARTHRITIS [None]
  - SKIN BURNING SENSATION [None]
